FAERS Safety Report 12378406 (Version 2)
Quarter: 2016Q2

REPORT INFORMATION
  Report Type: Spontaneous
  Country: JP (occurrence: JP)
  Receive Date: 20160517
  Receipt Date: 20160531
  Transmission Date: 20160815
  Serious: Yes (Other)
  Sender: FDA-Public Use
  Company Number: JP-JNJFOC-20160513803

PATIENT
  Sex: Male

DRUGS (1)
  1. TRAMCET [Suspect]
     Active Substance: ACETAMINOPHEN\TRAMADOL
     Indication: PAIN
     Dosage: 4 TIMES A DAY
     Route: 048
     Dates: start: 201604, end: 201604

REACTIONS (6)
  - Malaise [Unknown]
  - Feeling abnormal [Unknown]
  - Paralysis [Unknown]
  - Asthenia [Unknown]
  - Erectile dysfunction [Unknown]
  - Inadequate analgesia [Unknown]

NARRATIVE: CASE EVENT DATE: 201604
